FAERS Safety Report 8359130-4 (Version None)
Quarter: 2012Q2

REPORT INFORMATION
  Report Type: 
  Country: None (occurrence: None)
  Receive Date: 20120511
  Receipt Date: 20120427
  Transmission Date: 20120825
  Serious: Yes (Other)
  Sender: FDA-Public Use
  Company Number: FR-1191903

PATIENT
  Age: 55 Year
  Sex: Female

DRUGS (5)
  1. TRAVATAN [Suspect]
     Indication: OCULAR HYPERTENSION
     Dosage: 1 GTT QD, OS, OPHTHALMIC
     Route: 047
     Dates: start: 20110101, end: 20110113
  2. PROGESTERONE [Concomitant]
  3. OESTRODOSE [Concomitant]
  4. XANAX [Concomitant]
  5. PAROXETINE [Suspect]
     Indication: DEPRESSION
     Dosage: 1 DOSE DAILY, ORAL
     Route: 048
     Dates: start: 20101027

REACTIONS (3)
  - RETINAL HAEMORRHAGE [None]
  - VISUAL IMPAIRMENT [None]
  - VITREOUS FLOATERS [None]
